FAERS Safety Report 6731985-6 (Version None)
Quarter: 2010Q2

REPORT INFORMATION
  Report Type: 
  Country: None (occurrence: None)
  Receive Date: 20100519
  Receipt Date: 20100506
  Transmission Date: 20101027
  Serious: Yes (Hospitalization)
  Sender: FDA-Public Use
  Company Number: PHHY2010CN29356

PATIENT
  Age: 65 Year
  Sex: Male

DRUGS (1)
  1. SANDOSTATIN LAR [Suspect]
     Indication: HEPATIC NEOPLASM MALIGNANT
     Dosage: UNK
     Route: 030
     Dates: start: 20100502

REACTIONS (4)
  - CONDITION AGGRAVATED [None]
  - MUSCLE TWITCHING [None]
  - NEEDLE ISSUE [None]
  - PYREXIA [None]
